FAERS Safety Report 25032824 (Version 1)
Quarter: 2025Q1

REPORT INFORMATION
  Report Type: Spontaneous
  Country: CH (occurrence: CH)
  Receive Date: 20250303
  Receipt Date: 20250303
  Transmission Date: 20250409
  Serious: Yes (Hospitalization)
  Sender: NOVARTIS
  Company Number: None

PATIENT
  Age: 54 Year
  Sex: Male

DRUGS (4)
  1. TASIGNA [Suspect]
     Active Substance: NILOTINIB
     Indication: Myeloproliferative neoplasm
     Dosage: 150 MG, QD
     Route: 048
     Dates: start: 202408, end: 20250131
  2. PRALUENT [Concomitant]
     Active Substance: ALIROCUMAB
     Indication: Product used for unknown indication
     Dosage: 1 DOSAGE FORM, QMO ALIROCUMAB (PRALUENT) DOSAGE UNKNOWN 1X/MONTH, PO
     Route: 048
     Dates: start: 202408
  3. ASPIRIN [Concomitant]
     Active Substance: ASPIRIN
     Indication: Product used for unknown indication
     Route: 048
  4. Lisilich comp [Concomitant]
     Indication: Product used for unknown indication
     Route: 048

REACTIONS (1)
  - Lung disorder [Recovering/Resolving]

NARRATIVE: CASE EVENT DATE: 20250101
